FAERS Safety Report 6837266-4 (Version None)
Quarter: 2010Q3

REPORT INFORMATION
  Report Type: 
  Country: None (occurrence: None)
  Receive Date: 20100713
  Receipt Date: 20070507
  Transmission Date: 20110219
  Serious: No
  Sender: FDA-Public Use
  Company Number: US-PFIZER INC-2007038190

PATIENT
  Sex: Female
  Weight: 68.181 kg

DRUGS (4)
  1. CHANTIX [Suspect]
     Indication: SMOKING CESSATION THERAPY
     Route: 048
     Dates: start: 20070505
  2. FLOVENT [Concomitant]
  3. SEREVENT [Concomitant]
  4. MONTELUKAST SODIUM [Concomitant]

REACTIONS (1)
  - VOMITING [None]
